FAERS Safety Report 8190328-4 (Version None)
Quarter: 2012Q1

REPORT INFORMATION
  Report Type: 
  Country: None (occurrence: None)
  Receive Date: 20120305
  Receipt Date: 20120217
  Transmission Date: 20120608
  Serious: Yes (Hospitalization)
  Sender: FDA-Public Use
  Company Number: 2011SGN00242

PATIENT
  Sex: Female

DRUGS (1)
  1. ADCETRIS [Suspect]
     Indication: PRODUCT USED FOR UNKNOWN INDICATION
     Dosage: 170 MG, SINGLE, INTRAVENOUS
     Route: 042
     Dates: start: 20110101, end: 20111012

REACTIONS (2)
  - DYSPNOEA [None]
  - SENSORY DISTURBANCE [None]
